FAERS Safety Report 4620029-8 (Version None)
Quarter: 2005Q1

REPORT INFORMATION
  Report Type: 
  Country: None (occurrence: None)
  Receive Date: 20050324
  Receipt Date: 20050324
  Transmission Date: 20050727
  Serious: Yes (Other)
  Sender: FDA-Public Use
  Company Number: None

PATIENT
  Age: 44 Year
  Sex: Male

DRUGS (1)
  1. COMBIVENT [Suspect]
     Indication: PNEUMONIA
     Dosage: 4 PUFFS Q 4 HR
     Dates: start: 20050110

REACTIONS (1)
  - MYDRIASIS [None]
